FAERS Safety Report 4800600-0 (Version None)
Quarter: 2005Q4

REPORT INFORMATION
  Report Type: 
  Country: None (occurrence: None)
  Receive Date: 20051013
  Receipt Date: 20051013
  Transmission Date: 20060501
  Serious: Yes (Death)
  Sender: FDA-Public Use
  Company Number: None

PATIENT
  Age: 34 Year
  Sex: Male
  Weight: 63.9572 kg

DRUGS (3)
  1. FLUOXETINE 20 ML [Suspect]
     Indication: INSOMNIA
     Dosage: 1 CAPSULE DAILY
     Dates: start: 20050721, end: 20050810
  2. FLUOXETINE 20 ML [Suspect]
     Indication: STRESS
     Dosage: 1 CAPSULE DAILY
     Dates: start: 20050721, end: 20050810
  3. FLUOXETINE 20 ML [Suspect]

REACTIONS (1)
  - COMPLETED SUICIDE [None]
